FAERS Safety Report 22297698 (Version 1)
Quarter: 2023Q2

REPORT INFORMATION
  Report Type: Report from Study
  Country: EG (occurrence: EG)
  Receive Date: 20230509
  Receipt Date: 20230509
  Transmission Date: 20230722
  Serious: Yes (Other)
  Sender: FDA-Public Use
  Company Number: EG-002147023-NVSC2023EG104246

PATIENT
  Sex: Female

DRUGS (2)
  1. COSENTYX [Suspect]
     Active Substance: SECUKINUMAB
     Indication: Psoriatic arthropathy
     Dosage: 1 DOSAGE FORM, QMO (STARTED 4 - 5 YEARS AGO) (STOPPED YEAR AND HALF AGO)
     Route: 058
  2. COSENTYX [Suspect]
     Active Substance: SECUKINUMAB
     Indication: Skin lesion

REACTIONS (4)
  - Hypothyroidism [Recovering/Resolving]
  - Insulin resistance [Recovering/Resolving]
  - Skin lesion [Not Recovered/Not Resolved]
  - Rash macular [Not Recovered/Not Resolved]
